FAERS Safety Report 18053364 (Version 1)
Quarter: 2020Q3

REPORT INFORMATION
  Report Type: Spontaneous
  Country: US (occurrence: US)
  Receive Date: 20200721
  Receipt Date: 20200721
  Transmission Date: 20201103
  Serious: Yes (Death)
  Sender: FDA-Public Use
  Company Number: None

PATIENT
  Age: 73 Year
  Sex: Female
  Weight: 110.22 kg

DRUGS (12)
  1. REMDESIVIR. [Suspect]
     Active Substance: REMDESIVIR
     Indication: COVID-19
     Route: 048
     Dates: start: 20200714, end: 20200718
  2. ATORVASTATIN [Concomitant]
     Active Substance: ATORVASTATIN
  3. LIDOCAINE. [Concomitant]
     Active Substance: LIDOCAINE
  4. FENTANYL. [Concomitant]
     Active Substance: FENTANYL
  5. PHYTONADIONE. [Concomitant]
     Active Substance: PHYTONADIONE
  6. PROPOFOL. [Concomitant]
     Active Substance: PROPOFOL
  7. MORPHINE [Concomitant]
     Active Substance: MORPHINE
  8. FUROSEMIDE. [Concomitant]
     Active Substance: FUROSEMIDE
  9. ZOSYN [Concomitant]
     Active Substance: PIPERACILLIN SODIUM\TAZOBACTAM SODIUM
  10. EPINEPHRINE. [Concomitant]
     Active Substance: EPINEPHRINE
  11. LOVENOX [Concomitant]
     Active Substance: ENOXAPARIN SODIUM
  12. PEG [Concomitant]
     Active Substance: POLYETHYLENE GLYCOLS

REACTIONS (3)
  - Gastrointestinal haemorrhage [None]
  - Blood loss anaemia [None]
  - Hypotension [None]

NARRATIVE: CASE EVENT DATE: 20200718
